FAERS Safety Report 7480996-4 (Version None)
Quarter: 2011Q2

REPORT INFORMATION
  Report Type: 
  Country: None (occurrence: None)
  Receive Date: 20110505
  Receipt Date: 20110428
  Transmission Date: 20111010
  Serious: Yes (Death)
  Sender: FDA-Public Use
  Company Number: 2011AM004368

PATIENT
  Age: 61 Year
  Sex: Female

DRUGS (5)
  1. SYMLIN [Suspect]
     Indication: TYPE 1 DIABETES MELLITUS
     Dosage: 15 MCG;TID;SC
     Route: 058
     Dates: start: 20110425, end: 20110427
  2. JANUVIA [Concomitant]
  3. LANTUS [Concomitant]
  4. PIOGLITAZONE [Concomitant]
  5. INSULIN [Concomitant]

REACTIONS (3)
  - NAUSEA [None]
  - VOMITING [None]
  - DECREASED APPETITE [None]
